FAERS Safety Report 7492635-7 (Version None)
Quarter: 2011Q2

REPORT INFORMATION
  Report Type: 
  Country: None (occurrence: None)
  Receive Date: 20110519
  Receipt Date: 20110512
  Transmission Date: 20111010
  Serious: Yes (Other)
  Sender: FDA-Public Use
  Company Number: US-US-EMD SERONO, INC.-7054687

PATIENT
  Sex: Female

DRUGS (2)
  1. REBIF [Suspect]
     Indication: PRODUCT USED FOR UNKNOWN INDICATION
     Route: 058
     Dates: start: 20110209, end: 20110301
  2. REBIF [Suspect]
     Route: 058
     Dates: start: 20110301, end: 20110405

REACTIONS (4)
  - PERICARDIAL EFFUSION [None]
  - ANAPHYLACTIC REACTION [None]
  - PLEURAL EFFUSION [None]
  - ANXIETY [None]
